FAERS Safety Report 8777945 (Version 2)
Quarter: 2012Q4

REPORT INFORMATION
  Report Type: 
  Country: US (occurrence: US)
  Receive Date: 20120912
  Receipt Date: 20121011
  Transmission Date: 20130627
  Serious: No
  Sender: FDA-Public Use
  Company Number: US-ASTRAZENECA-2012SE61356

PATIENT
  Age: 70 Year
  Sex: Female
  Weight: 76.2 kg

DRUGS (6)
  1. SYMBICORT [Suspect]
     Dosage: 160/4.5 mcg, 2 PUFFS DAILY
     Route: 055
  2. SINGULAIR [Concomitant]
  3. PREDNISONE [Concomitant]
  4. ENBREL [Concomitant]
  5. METHOTREXATE [Concomitant]
  6. FOLIC ACID [Concomitant]

REACTIONS (7)
  - Respiratory rate increased [Unknown]
  - Confusional state [Unknown]
  - Dizziness [Not Recovered/Not Resolved]
  - Nervousness [Not Recovered/Not Resolved]
  - Cough [Recovering/Resolving]
  - Intentional drug misuse [Unknown]
  - Off label use [Unknown]
